FAERS Safety Report 5013303-7 (Version None)
Quarter: 2006Q2

REPORT INFORMATION
  Report Type: 
  Country: None (occurrence: None)
  Receive Date: 20060530
  Receipt Date: 20060330
  Transmission Date: 20061013
  Serious: Yes (Other)
  Sender: FDA-Public Use
  Company Number: US-GLAXOSMITHKLINE-A0600905A

PATIENT
  Age: 53 Year
  Sex: Male
  Weight: 68.2 kg

DRUGS (12)
  1. WELLBUTRIN XL [Suspect]
     Indication: DRUG USE FOR UNKNOWN INDICATION
     Dosage: 150MG PER DAY
     Route: 048
     Dates: start: 20021218, end: 20060322
  2. RISPERDAL [Concomitant]
     Route: 048
     Dates: start: 20021218
  3. SINEQUAN [Concomitant]
  4. PREVACID [Concomitant]
  5. COUMADIN [Concomitant]
  6. THIAMINE [Concomitant]
  7. ZESTRIL [Concomitant]
  8. NORVASC [Concomitant]
  9. SODIUM BICARBONATE [Concomitant]
  10. PRINIVIL [Concomitant]
  11. RENAGEL [Concomitant]
     Route: 061
  12. ALCOHOL [Concomitant]
     Route: 048
     Dates: start: 20060309, end: 20060309

REACTIONS (2)
  - CONVULSION [None]
  - POSTICTAL STATE [None]
